FAERS Safety Report 23510765 (Version 5)
Quarter: 2025Q2

REPORT INFORMATION
  Report Type: Report from Study
  Country: US (occurrence: US)
  Receive Date: 20240212
  Receipt Date: 20250424
  Transmission Date: 20250716
  Serious: Yes (Other)
  Sender: TAKEDA
  Company Number: US-TAKEDA-ALL1-2013-04174

PATIENT
  Age: 1 Year
  Sex: Male

DRUGS (4)
  1. IDURSULFASE [Suspect]
     Active Substance: IDURSULFASE
     Indication: Mucopolysaccharidosis II
     Dosage: 6 MILLIGRAM, 1/WEEK
     Dates: start: 20121207
  2. IDURSULFASE [Suspect]
     Active Substance: IDURSULFASE
     Dosage: 34 MILLIGRAM, 1/WEEK
     Dates: start: 202106
  3. IDURSULFASE [Suspect]
     Active Substance: IDURSULFASE
     Dosage: 36 MILLIGRAM, 1/WEEK
  4. IDURSULFASE [Suspect]
     Active Substance: IDURSULFASE
     Dosage: 38 MILLIGRAM, 1/WEEK

REACTIONS (4)
  - Head injury [Unknown]
  - Weight decreased [Unknown]
  - Weight increased [Unknown]
  - Fall [Recovered/Resolved]

NARRATIVE: CASE EVENT DATE: 20130616
